FAERS Safety Report 8555556-4 (Version None)
Quarter: 2012Q3

REPORT INFORMATION
  Report Type: 
  Country: None (occurrence: None)
  Receive Date: 20120731
  Receipt Date: 20110811
  Transmission Date: 20120928
  Serious: Yes (Other)
  Sender: FDA-Public Use
  Company Number: US-ASTRAZENECA-2010SE11313

PATIENT
  Age: 64 Year
  Sex: Female
  Weight: 121.1 kg

DRUGS (18)
  1. SEROQUEL [Suspect]
     Route: 048
  2. SEROQUEL [Suspect]
     Route: 048
     Dates: start: 20100308
  3. FENTANYL CITRATE [Concomitant]
     Indication: PAIN
  4. SEROQUEL [Suspect]
     Route: 048
  5. PLAVIX [Concomitant]
     Indication: THROMBOSIS
  6. PERCOCET [Concomitant]
  7. SEROQUEL [Suspect]
     Indication: BIPOLAR DISORDER
     Route: 048
     Dates: start: 20080101, end: 20100307
  8. SEROQUEL [Suspect]
     Route: 048
     Dates: start: 20100308
  9. SEROQUEL [Suspect]
     Route: 048
     Dates: start: 20100308
  10. LIDOCAINE [Concomitant]
     Indication: PAIN
  11. LOVASTATIN [Concomitant]
     Indication: BLOOD CHOLESTEROL ABNORMAL
  12. VALIUM [Concomitant]
     Indication: CONVULSION
  13. HYDROCHOLOROTHYZIDE [Concomitant]
     Indication: HYPERTENSION
  14. SEROQUEL [Suspect]
     Indication: PANIC ATTACK
     Route: 048
     Dates: start: 20080101, end: 20100307
  15. SEROQUEL [Suspect]
     Indication: ANXIETY
     Route: 048
     Dates: start: 20080101, end: 20100307
  16. SEROQUEL [Suspect]
     Route: 048
  17. OXYCODONE HCL [Concomitant]
     Indication: PAIN
     Dosage: 5 MG/3  25 MG, Q4-6H
  18. ENALAPRIL MALEATE [Concomitant]
     Indication: HYPERTENSION

REACTIONS (19)
  - INSOMNIA [None]
  - EMOTIONAL DISTRESS [None]
  - PANIC ATTACK [None]
  - SPINAL DISORDER [None]
  - AGITATION [None]
  - ARTHRALGIA [None]
  - STRESS [None]
  - CONVULSION [None]
  - FEELING ABNORMAL [None]
  - DRUG INEFFECTIVE [None]
  - FALL [None]
  - MALAISE [None]
  - HYPERHIDROSIS [None]
  - PANIC REACTION [None]
  - LIMB INJURY [None]
  - DIZZINESS [None]
  - DRUG DOSE OMISSION [None]
  - DEPRESSED MOOD [None]
  - ACCIDENT [None]
